FAERS Safety Report 4450079-6 (Version None)
Quarter: 2004Q3

REPORT INFORMATION
  Report Type: 
  Country: None (occurrence: None)
  Receive Date: 20040910
  Receipt Date: 20040812
  Transmission Date: 20050211
  Serious: Yes (Hospitalization)
  Sender: FDA-Public Use
  Company Number: S04-USA-04974-01

PATIENT
  Age: 78 Year
  Sex: Female

DRUGS (2)
  1. LEXAPRO [Suspect]
     Indication: DEPRESSION
     Dosage: 10 MG QD PO
     Route: 048
     Dates: start: 20040808
  2. NEXIUM [Concomitant]

REACTIONS (3)
  - CHEST PAIN [None]
  - FLUSHING [None]
  - NAUSEA [None]
